FAERS Safety Report 14519626 (Version 1)
Quarter: 2018Q1

REPORT INFORMATION
  Report Type: Spontaneous
  Country: US (occurrence: US)
  Receive Date: 20180210
  Receipt Date: 20180210
  Transmission Date: 20180509
  Serious: Yes (Hospitalization)
  Sender: FDA-Public Use
  Company Number: None

PATIENT
  Age: 64 Year
  Sex: Male

DRUGS (16)
  1. MINOXIDIL. [Concomitant]
     Active Substance: MINOXIDIL
  2. GABAPENTIN. [Concomitant]
     Active Substance: GABAPENTIN
  3. ATORVASTATIN [Concomitant]
     Active Substance: ATORVASTATIN
  4. LISINOPRIL. [Concomitant]
     Active Substance: LISINOPRIL
  5. ATORVASTATIN [Concomitant]
     Active Substance: ATORVASTATIN
  6. ISONIAZID. [Concomitant]
     Active Substance: ISONIAZID
  7. LABETALOL [Concomitant]
     Active Substance: LABETALOL\LABETALOL HYDROCHLORIDE
  8. TRUE METRIX [Concomitant]
  9. NIFEDIPINE. [Concomitant]
     Active Substance: NIFEDIPINE
  10. VIRT CAPS [Concomitant]
  11. DOK [Concomitant]
     Active Substance: DOCUSATE SODIUM
  12. VITAMIN D [Concomitant]
     Active Substance: CHOLECALCIFEROL
  13. RIFAMIN [Concomitant]
  14. CALC ACETATE [Concomitant]
  15. SENSIPAR [Suspect]
     Active Substance: CINACALCET HYDROCHLORIDE
     Indication: HYPERPARATHYROIDISM
     Route: 048
     Dates: start: 20171226
  16. FREESTYLE TES [Concomitant]

REACTIONS (3)
  - Malaise [None]
  - Dyspnoea [None]
  - Drug dose omission [None]

NARRATIVE: CASE EVENT DATE: 20180209
